FAERS Safety Report 7809421-8 (Version None)
Quarter: 2011Q4

REPORT INFORMATION
  Report Type: 
  Country: None (occurrence: None)
  Receive Date: 20111006
  Receipt Date: 20110927
  Transmission Date: 20120403
  Serious: Yes (Other)
  Sender: FDA-Public Use
  Company Number: 2011SP045896

PATIENT
  Age: 38 Year
  Sex: Female
  Weight: 50 kg

DRUGS (1)
  1. DESOGESTREL AND ETHINYL ESTRADIOL [Suspect]
     Indication: CONTRACEPTION
     Dosage: QD;PO
     Route: 048
     Dates: start: 20090101, end: 20110901

REACTIONS (1)
  - LEIOMYOMA [None]
